FAERS Safety Report 8465005 (Version 2)
Quarter: 2013Q2

REPORT INFORMATION
  Report Type: Spontaneous
  Country: US (occurrence: US)
  Receive Date: 20120319
  Receipt Date: 20130424
  Transmission Date: 20140414
  Serious: Yes (Hospitalization, Other)
  Sender: FDA-Public Use
  Company Number: US-JNJFOC-20120304862

PATIENT
  Sex: Female

DRUGS (1)
  1. LEVAQUIN [Suspect]
     Indication: SINUSITIS
     Route: 042
     Dates: start: 20090302

REACTIONS (5)
  - Cartilage injury [Unknown]
  - Tendon injury [Unknown]
  - Costochondritis [Unknown]
  - Ligament injury [Unknown]
  - Soft tissue injury [Unknown]
